FAERS Safety Report 4378736-0 (Version None)
Quarter: 2004Q2

REPORT INFORMATION
  Report Type: 
  Country: None (occurrence: None)
  Receive Date: 20040609
  Receipt Date: 20040526
  Transmission Date: 20050107
  Serious: Yes (Death)
  Sender: FDA-Public Use
  Company Number: USA040568542

PATIENT
  Age: 69 Year
  Sex: Female

DRUGS (3)
  1. HUMULIN U [Suspect]
     Dates: start: 19950101
  2. HUMULIN R [Suspect]
     Dates: start: 19950101
  3. HUMULIN N [Suspect]
     Dates: end: 19950101

REACTIONS (4)
  - BLOOD GLUCOSE INCREASED [None]
  - DIARRHOEA [None]
  - FEELING ABNORMAL [None]
  - VOMITING [None]
